FAERS Safety Report 7465150-4 (Version None)
Quarter: 2011Q2

REPORT INFORMATION
  Report Type: 
  Country: None (occurrence: None)
  Receive Date: 20110505
  Receipt Date: 20110505
  Transmission Date: 20111010
  Serious: No
  Sender: FDA-Public Use
  Company Number: None

PATIENT
  Age: 72 Year
  Sex: Female
  Weight: 61.2356 kg

DRUGS (1)
  1. VALACYCLOVIR [Suspect]
     Indication: HERPES ZOSTER
     Dosage: 1 PILL 3 TIME A DAY 6 AM - 12 NOON 6 PM

REACTIONS (3)
  - EPISTAXIS [None]
  - DRUG HYPERSENSITIVITY [None]
  - NASAL CYST [None]
